FAERS Safety Report 5001562-6 (Version None)
Quarter: 2006Q2

REPORT INFORMATION
  Report Type: 
  Country: None (occurrence: None)
  Receive Date: 20060510
  Receipt Date: 20060424
  Transmission Date: 20061013
  Serious: No
  Sender: FDA-Public Use
  Company Number: TRP_0759_2006

PATIENT
  Age: 60 Year
  Sex: Male

DRUGS (7)
  1. RIBASPHERE [Suspect]
     Indication: HEPATITIS C
     Dosage: DF PO
     Route: 048
     Dates: start: 20060205
  2. PEG-INTRON [Suspect]
  3. LACTULOSE [Concomitant]
  4. NEOMYCIN SULFATE [Concomitant]
  5. PROTONIX [Concomitant]
  6. TIZANIDINE HYDROCHLORIDE [Concomitant]
  7. VICODIN [Concomitant]

REACTIONS (5)
  - ASTHENIA [None]
  - HAEMATURIA [None]
  - NAUSEA [None]
  - ORAL INTAKE REDUCED [None]
  - RED BLOOD CELL COUNT DECREASED [None]
